FAERS Safety Report 5258085-9 (Version None)
Quarter: 2007Q1

REPORT INFORMATION
  Report Type: 
  Country: None (occurrence: None)
  Receive Date: 20070302
  Receipt Date: 20070221
  Transmission Date: 20070707
  Serious: Yes (Life-Threatening, Disabling)
  Sender: FDA-Public Use
  Company Number: GXKR2007DK01904

PATIENT
  Age: 56 Year
  Sex: Male

DRUGS (4)
  1. CLARITHROMYCIN SANDOZ (NGX) (CLARITHROMYCIN) UNKNOWN, 500 MG [Suspect]
     Indication: ULCER
     Dosage: 500 MG, ORAL
     Route: 048
     Dates: start: 20060730, end: 20060807
  2. IMADRAX (AMOXICILLIN TRIHYDRATE) [Concomitant]
  3. PLAVIX [Concomitant]
  4. METFORMIN HCL [Concomitant]

REACTIONS (3)
  - ARTERIOSCLEROSIS [None]
  - CARDIAC DISORDER [None]
  - INTRACARDIAC THROMBUS [None]
